FAERS Safety Report 19390248 (Version 1)
Quarter: 2021Q2

REPORT INFORMATION
  Report Type: Spontaneous
  Country: US (occurrence: US)
  Receive Date: 20210608
  Receipt Date: 20210608
  Transmission Date: 20210717
  Serious: No
  Sender: FDA-Public Use
  Company Number: US-GW PHARMA-202105USGW02710

PATIENT

DRUGS (1)
  1. EPIDIOLEX [Suspect]
     Active Substance: CANNABIDIOL
     Indication: LENNOX-GASTAUT SYNDROME
     Dosage: 1.76 MG/KG/DAY, 50 MILLIGRAM, BID (PRESCRIBED DOSE 100 MILLIGRAM BID)
     Route: 048
     Dates: start: 20210518, end: 20210531

REACTIONS (6)
  - Allergic reaction to excipient [Unknown]
  - Lip swelling [Not Recovered/Not Resolved]
  - Weight decreased [Unknown]
  - Incorrect dose administered [Unknown]
  - Oral mucosal erythema [Unknown]
  - Dysphonia [Unknown]

NARRATIVE: CASE EVENT DATE: 202105
